FAERS Safety Report 15881087 (Version 5)
Quarter: 2019Q2

REPORT INFORMATION
  Report Type: Spontaneous
  Country: AT (occurrence: AT)
  Receive Date: 20190128
  Receipt Date: 20190410
  Transmission Date: 20190711
  Serious: Yes (Other)
  Sender: FDA-Public Use
  Company Number: AT-PFIZER INC-2019030979

PATIENT
  Age: 49 Year
  Sex: Female

DRUGS (7)
  1. PONATINIB [Suspect]
     Active Substance: PONATINIB
     Indication: CHRONIC MYELOID LEUKAEMIA
     Dosage: UNK
     Route: 065
  2. ONDANSETRON [Suspect]
     Active Substance: ONDANSETRON
     Indication: NAUSEA
     Route: 065
  3. NILOTINIB [Suspect]
     Active Substance: NILOTINIB
     Indication: CHRONIC MYELOID LEUKAEMIA
     Dosage: 150 MG, 2X/DAY
     Route: 065
     Dates: start: 20170105, end: 20170113
  4. DASATINIB. [Suspect]
     Active Substance: DASATINIB
     Dosage: UNK
     Route: 065
  5. GLIVEC [Suspect]
     Active Substance: IMATINIB MESYLATE
     Indication: CHRONIC MYELOID LEUKAEMIA
     Dosage: 400 MG, 1X/DAY
     Route: 065
     Dates: start: 20160219, end: 20160310
  6. DASATINIB. [Suspect]
     Active Substance: DASATINIB
     Indication: CHRONIC MYELOID LEUKAEMIA
     Dosage: 50 MG, EVERY 3 WEEKS
     Route: 065
  7. BOSUTINIB [Suspect]
     Active Substance: BOSUTINIB
     Indication: CHRONIC MYELOID LEUKAEMIA
     Dosage: UNK
     Route: 065

REACTIONS (8)
  - Capillary leak syndrome [Unknown]
  - Skin toxicity [Unknown]
  - Nausea [Unknown]
  - Neoplasm progression [Unknown]
  - Myelodysplastic syndrome [Unknown]
  - Cytopenia [Unknown]
  - Pancytopenia [Not Recovered/Not Resolved]
  - Second primary malignancy [Unknown]
